FAERS Safety Report 6204059-0 (Version None)
Quarter: 2009Q2

REPORT INFORMATION
  Report Type: 
  Country: None (occurrence: None)
  Receive Date: 20090527
  Receipt Date: 20090522
  Transmission Date: 20091009
  Serious: Yes (Other)
  Sender: FDA-Public Use
  Company Number: KR-JNJFOC-20090505841

PATIENT
  Age: 78 Year
  Sex: Male

DRUGS (4)
  1. SPORANOX [Suspect]
     Indication: ONYCHOMYCOSIS
     Route: 048
  2. ALIBENDOL [Concomitant]
     Indication: DYSPEPSIA
     Route: 048
  3. PIPRINHYDRINATE [Concomitant]
     Indication: ONYCHOMYCOSIS
     Route: 065
  4. CLOTRIMAZOLE [Concomitant]
     Indication: ONYCHOMYCOSIS
     Route: 061

REACTIONS (2)
  - RETINAL HAEMORRHAGE [None]
  - VISUAL IMPAIRMENT [None]
